FAERS Safety Report 6197448-4 (Version None)
Quarter: 2009Q2

REPORT INFORMATION
  Report Type: 
  Country: None (occurrence: None)
  Receive Date: 20090521
  Receipt Date: 20090309
  Transmission Date: 20091009
  Serious: No
  Sender: FDA-Public Use
  Company Number: US-TEVA-184789USA

PATIENT
  Sex: Male
  Weight: 80.812 kg

DRUGS (7)
  1. AZILECT [Suspect]
     Indication: PARKINSON'S DISEASE
     Route: 048
     Dates: start: 20090102
  2. INSULIN [Concomitant]
  3. INSULIN GLARGINE [Concomitant]
  4. ACETYLSALICYLIC ACID [Concomitant]
  5. ALPHA-CAPROIC ACID [Concomitant]
  6. RESORBITOL [Concomitant]
  7. AMALYN [Concomitant]

REACTIONS (3)
  - MUSCLE SPASMS [None]
  - RESTLESSNESS [None]
  - SLEEP DISORDER [None]
